FAERS Safety Report 9101581 (Version 1)
Quarter: 2013Q1

REPORT INFORMATION
  Report Type: Spontaneous
  Country: FR (occurrence: FR)
  Receive Date: 20130215
  Receipt Date: 20130215
  Transmission Date: 20140127
  Serious: Yes (Congenital Anomaly)
  Sender: FDA-Public Use
  Company Number: FR-PFIZER INC-2013054048

PATIENT
  Sex: 0

DRUGS (1)
  1. SYNAREL [Suspect]
     Route: 064

REACTIONS (3)
  - Maternal exposure during pregnancy [Not Recovered/Not Resolved]
  - Cleft palate [Not Recovered/Not Resolved]
  - Limb malformation [Not Recovered/Not Resolved]
